FAERS Safety Report 10387536 (Version 1)
Quarter: 2014Q3

REPORT INFORMATION
  Report Type: Spontaneous
  Country: US (occurrence: None)
  Receive Date: 20140814
  Receipt Date: 20140814
  Transmission Date: 20150326
  Serious: Yes (Other)
  Sender: FDA-Public Use
  Company Number: None

PATIENT
  Age: 85 Year
  Sex: Female
  Weight: 72.58 kg

DRUGS (4)
  1. VITAMIN D3 [Concomitant]
     Active Substance: CHOLECALCIFEROL
  2. IRBESARTAN. [Concomitant]
     Active Substance: IRBESARTAN
  3. ALENDRONATE SOD [Concomitant]
  4. MYRBETRIQ [Suspect]
     Active Substance: MIRABEGRON
     Indication: NOCTURIA
     Dosage: 25 MG ?./1?./1?PER 0-0
     Dates: start: 20140607, end: 20140712

REACTIONS (1)
  - Rash [None]

NARRATIVE: CASE EVENT DATE: 20140712
